FAERS Safety Report 4466500-3 (Version None)
Quarter: 2004Q3

REPORT INFORMATION
  Report Type: 
  Country: None (occurrence: None)
  Receive Date: 20040930
  Receipt Date: 20040922
  Transmission Date: 20050211
  Serious: Yes (Hospitalization)
  Sender: FDA-Public Use
  Company Number: 2004-04168

PATIENT
  Age: 68 Year
  Sex: Female
  Weight: 68 kg

DRUGS (5)
  1. HYDROCODONE BITARTRATE/ACETAMINOPHEN 7.5/750 (WATSON LABORABORIES) (AC [Suspect]
     Indication: FOOT OPERATION
     Dosage: 1 TABLET , PRN (7TABS/33HRS), ORAL
     Route: 048
     Dates: start: 20040903, end: 20040904
  2. HYDROCODONE BITARTRATE/ACETAMINOPHEN 7.5/750 (WATSON LABORABORIES) (AC [Suspect]
     Indication: PAIN
     Dosage: 1 TABLET , PRN (7TABS/33HRS), ORAL
     Route: 048
     Dates: start: 20040903, end: 20040904
  3. ENDOCET (PARACETAMOL) [Suspect]
     Indication: FOOT OPERATION
     Dosage: 1 TABLET , PRN, ORAL
     Route: 048
     Dates: start: 20040901, end: 20040902
  4. ENDOCET (PARACETAMOL) [Suspect]
     Indication: PAIN
     Dosage: 1 TABLET , PRN, ORAL
     Route: 048
     Dates: start: 20040901, end: 20040902
  5. AVALIDE [Concomitant]

REACTIONS (1)
  - HEPATITIS A [None]
